FAERS Safety Report 4970820-3 (Version None)
Quarter: 2006Q2

REPORT INFORMATION
  Report Type: 
  Country: None (occurrence: None)
  Receive Date: 20060412
  Receipt Date: 20060316
  Transmission Date: 20061013
  Serious: Yes (Death)
  Sender: FDA-Public Use
  Company Number: US-ROCHE-440984

PATIENT
  Age: 49 Year
  Sex: Male
  Weight: 68.9 kg

DRUGS (5)
  1. FUZEON [Suspect]
     Route: 058
     Dates: start: 20031223, end: 20051227
  2. TIPRANAVIR [Concomitant]
     Route: 048
     Dates: start: 20031223, end: 20051227
  3. RITONAVIR [Concomitant]
     Route: 048
     Dates: start: 20031223, end: 20051227
  4. LAMIVUDINE [Concomitant]
     Route: 048
     Dates: start: 20031223, end: 20051227
  5. ABACAVIR [Concomitant]
     Route: 048
     Dates: start: 20031223, end: 20051227

REACTIONS (3)
  - LYMPHOMA [None]
  - METASTASES TO LIVER [None]
  - THERAPY NON-RESPONDER [None]
